FAERS Safety Report 5614470-4 (Version None)
Quarter: 2008Q1

REPORT INFORMATION
  Report Type: 
  Country: None (occurrence: None)
  Receive Date: 20080130
  Receipt Date: 20080114
  Transmission Date: 20080703
  Serious: Yes (Death)
  Sender: FDA-Public Use
  Company Number: 2008S1000080

PATIENT
  Age: 37 Year
  Sex: Male

DRUGS (7)
  1. ROXICODONE [Suspect]
     Dosage: PO
     Route: 048
     Dates: end: 20060101
  2. OLANZAPINE [Suspect]
     Dosage: PO
     Route: 048
     Dates: end: 20060101
  3. METHOCARBAMOL [Suspect]
     Dosage: PO
     Route: 048
     Dates: end: 20060101
  4. ZOLPIDEM [Suspect]
     Dosage: PO
     Route: 048
  5. MODAFINIL [Suspect]
     Dosage: PO
     Route: 048
     Dates: end: 20060101
  6. ANTIHISTAMINE/DECONGESTANT [Suspect]
     Dosage: PO
     Route: 048
     Dates: end: 20060101
  7. CITALOPRAM HYDROBROMIDE [Suspect]
     Dosage: PO
     Route: 048
     Dates: end: 20060101

REACTIONS (2)
  - CARDIAC ARREST [None]
  - RESPIRATORY ARREST [None]
